FAERS Safety Report 5003421-1 (Version None)
Quarter: 2006Q2

REPORT INFORMATION
  Report Type: 
  Country: None (occurrence: None)
  Receive Date: 20060511
  Receipt Date: 20060501
  Transmission Date: 20061013
  Serious: Yes (Hospitalization)
  Sender: FDA-Public Use
  Company Number: 2006S1000112

PATIENT
  Age: 54 Year
  Sex: Male
  Weight: 72.9838 kg

DRUGS (1)
  1. ACITRETIN [Suspect]
     Indication: PSORIASIS
     Dosage: 50 MG; QD; PO
     Route: 048
     Dates: start: 20051001

REACTIONS (5)
  - BACK PAIN [None]
  - CALCINOSIS [None]
  - INFLAMMATION [None]
  - OEDEMA [None]
  - SPINAL OSTEOARTHRITIS [None]
